FAERS Safety Report 21499860 (Version 1)
Quarter: 2022Q4

REPORT INFORMATION
  Report Type: Spontaneous
  Country: JP (occurrence: JP)
  Receive Date: 20221024
  Receipt Date: 20221024
  Transmission Date: 20230112
  Serious: Yes (Other)
  Sender: FDA-Public Use
  Company Number: JP-PFIZER INC-PV202200087025

PATIENT
  Age: 7 Decade
  Sex: Male

DRUGS (1)
  1. INLYTA [Suspect]
     Active Substance: AXITINIB
     Dosage: 14 MG, DAILY
     Route: 048

REACTIONS (2)
  - Anal ulcer [Recovering/Resolving]
  - Neoplasm progression [Unknown]
